FAERS Safety Report 13582489 (Version 3)
Quarter: 2017Q3

REPORT INFORMATION
  Report Type: Spontaneous
  Country: US (occurrence: US)
  Receive Date: 20170525
  Receipt Date: 20170822
  Transmission Date: 20171127
  Serious: Yes (Death, Other)
  Sender: FDA-Public Use
  Company Number: US-BRISTOL-MYERS SQUIBB COMPANY-BMS-2017-043852

PATIENT
  Age: 69 Year
  Sex: Male

DRUGS (1)
  1. YERVOY [Suspect]
     Active Substance: IPILIMUMAB
     Indication: ADJUVANT THERAPY
     Dosage: 10 MG/KG, UNK
     Route: 065
     Dates: start: 20170228, end: 20170411

REACTIONS (2)
  - Prescribed overdose [Unknown]
  - Hepatic failure [Fatal]

NARRATIVE: CASE EVENT DATE: 20170430
